FAERS Safety Report 17834114 (Version 1)
Quarter: 2020Q2

REPORT INFORMATION
  Report Type: Spontaneous
  Country: FR (occurrence: FR)
  Receive Date: 20200528
  Receipt Date: 20200528
  Transmission Date: 20200714
  Serious: Yes (Hospitalization)
  Sender: FDA-Public Use
  Company Number: FR-TEVA-2020-FR-1239512

PATIENT
  Age: 75 Year
  Sex: Male
  Weight: 85 kg

DRUGS (12)
  1. CANDESARTAN CILEXETIL. [Interacting]
     Active Substance: CANDESARTAN CILEXETIL
     Indication: HYPERTENSION
     Route: 048
     Dates: end: 20190829
  2. TAHOR [Interacting]
     Active Substance: ATORVASTATIN CALCIUM
     Indication: HYPERCHOLESTEROLAEMIA
     Route: 048
     Dates: end: 20190829
  3. IPRATROPIUM BROMIDE\FENOTEROL HYDROBROMIDE [Concomitant]
     Active Substance: FENOTEROL HYDROBROMIDE\IPRATROPIUM BROMIDE
     Route: 055
  4. OROKEN [Suspect]
     Active Substance: CEFIXIME
     Indication: URINARY TRACT INFECTION
     Dosage: UNSPECIFIED
     Route: 065
     Dates: start: 20190821, end: 20190826
  5. INNOVAIR [Concomitant]
     Active Substance: BECLOMETHASONE DIPROPIONATE\FORMOTEROL
     Route: 055
  6. MECIR L.P. 0,4 MG, COMPRIME PELLICULE A LIBERATION PROLONGEE [Concomitant]
     Dosage: UNSPECIFIED
     Route: 065
     Dates: start: 20190821
  7. ESOMEPRAZOLE. [Concomitant]
     Active Substance: ESOMEPRAZOLE MAGNESIUM
     Route: 048
     Dates: end: 20190829
  8. ULTIBRO BREEZHALER [Concomitant]
     Active Substance: GLYCOPYRRONIUM\INDACATEROL
     Dosage: UNSPECIFIED
     Route: 055
  9. CLARITHROMYCINE [Suspect]
     Active Substance: CLARITHROMYCIN
     Indication: URINARY TRACT INFECTION
     Dosage: UNSPECIFIED
     Route: 065
     Dates: start: 20190826, end: 20190829
  10. ULTRA LEVURE [Concomitant]
     Active Substance: SACCHAROMYCES CEREVISIAE
     Dosage: UNSPECIFIED
     Route: 048
  11. TAVANIC [Suspect]
     Active Substance: LEVOFLOXACIN
     Indication: URINARY TRACT INFECTION
     Dosage: UNSPECIFIED
     Route: 065
     Dates: start: 20190821, end: 20190826
  12. MONTELUKAST [Concomitant]
     Active Substance: MONTELUKAST SODIUM
     Route: 048

REACTIONS (4)
  - Drug interaction [Unknown]
  - Myalgia [Not Recovered/Not Resolved]
  - Restless legs syndrome [Recovering/Resolving]
  - Burning sensation [Not Recovered/Not Resolved]

NARRATIVE: CASE EVENT DATE: 20190821
